FAERS Safety Report 8890997 (Version 5)
Quarter: 2014Q3

REPORT INFORMATION
  Report Type: Spontaneous
  Country: US (occurrence: US)
  Receive Date: 20121106
  Receipt Date: 20140919
  Transmission Date: 20150326
  Serious: No
  Sender: FDA-Public Use
  Company Number: US-009507513-1211USA002027

PATIENT
  Sex: Male

DRUGS (2)
  1. PROPECIA [Suspect]
     Active Substance: FINASTERIDE
     Indication: ANDROGENETIC ALOPECIA
     Dosage: 1 MG, QD
     Route: 048
     Dates: start: 20040418, end: 20110305
  2. PROPECIA [Suspect]
     Active Substance: FINASTERIDE
     Indication: ALOPECIA

REACTIONS (9)
  - Sexual dysfunction [Not Recovered/Not Resolved]
  - Perineal pain [Unknown]
  - Abscess drainage [Unknown]
  - Cognitive disorder [Not Recovered/Not Resolved]
  - Mass excision [Unknown]
  - Erectile dysfunction [Unknown]
  - Premature ejaculation [Unknown]
  - Testicular pain [Unknown]
  - Micturition disorder [Unknown]

NARRATIVE: CASE EVENT DATE: 20040611
